FAERS Safety Report 10014421 (Version 1)
Quarter: 2014Q1

REPORT INFORMATION
  Report Type: Spontaneous
  Country: US (occurrence: US)
  Receive Date: 20140317
  Receipt Date: 20140317
  Transmission Date: 20141002
  Serious: No
  Sender: FDA-Public Use
  Company Number: US-009507513-1403USA006836

PATIENT
  Age: 29 Year
  Sex: Female
  Weight: 70.75 kg

DRUGS (3)
  1. NEXPLANON [Suspect]
     Indication: CONTRACEPTION
     Dosage: 1 ROD/3 YEARS
     Route: 059
     Dates: start: 20121011, end: 20140306
  2. NEXPLANON [Suspect]
     Dosage: UNK
     Route: 059
     Dates: start: 20140306
  3. ZOLOFT [Concomitant]

REACTIONS (9)
  - Device breakage [Unknown]
  - Device dislocation [Unknown]
  - Mood swings [Unknown]
  - Fatigue [Unknown]
  - Hypertrichosis [Unknown]
  - Menstruation normal [Unknown]
  - Hot flush [Unknown]
  - Feeling hot [Unknown]
  - Amenorrhoea [Unknown]
